FAERS Safety Report 19658063 (Version 5)
Quarter: 2021Q3

REPORT INFORMATION
  Report Type: Spontaneous
  Country: PL (occurrence: PL)
  Receive Date: 20210804
  Receipt Date: 20210917
  Transmission Date: 20211014
  Serious: Yes (Other)
  Sender: FDA-Public Use
  Company Number: NVSC2021PL175292

PATIENT
  Age: 5 Year
  Sex: Female

DRUGS (9)
  1. CARBOPLATIN. [Suspect]
     Active Substance: CARBOPLATIN
     Indication: NEPHROBLASTOMA
     Dosage: 2 CYCLES OF ICE (SECOND LINE CHEMOTHERAPY)
     Route: 065
  2. ENDOXAN [Suspect]
     Active Substance: CYCLOPHOSPHAMIDE
     Indication: NEPHROBLASTOMA
     Dosage: 2 CYCLES OF CCE (SECOND?LINE CHEMOTHERAPY)
     Route: 065
  3. HOLOXAN [Suspect]
     Active Substance: IFOSFAMIDE
     Indication: NEPHROBLASTOMA
     Dosage: 2 CYCLES OF CCE (SECOND?LINE CHEMOTHERAPY)
     Route: 065
  4. ETOPOSIDE. [Suspect]
     Active Substance: ETOPOSIDE
     Dosage: 2 CYCLES OF ICE (SECOND?LINE CHEMOTHERAPY)
     Route: 065
  5. VINCRISTINE SULFATE. [Suspect]
     Active Substance: VINCRISTINE SULFATE
     Indication: NEPHROBLASTOMA
     Dosage: 27?WEEK POSTOPERATIVE CHEMOTHERAPY
     Route: 065
  6. DOXORUBICIN [Suspect]
     Active Substance: DOXORUBICIN
     Indication: NEPHROBLASTOMA
     Dosage: 27?WEEK POSTOPERATIVE CHEMOTHERAPY
     Route: 065
  7. ETOPOSIDE. [Suspect]
     Active Substance: ETOPOSIDE
     Indication: NEPHROBLASTOMA
     Dosage: 2 CYCLES OF CCE (SECOND?LINE CHEMOTHERAPY)
     Route: 065
  8. CISPLATIN. [Suspect]
     Active Substance: CISPLATIN
     Indication: NEPHROBLASTOMA
     Dosage: 2 CYCLES (CCE, SECOND?LINE CHEMOTHERAPY)
     Route: 065
  9. ACTINOMYCIN D [Suspect]
     Active Substance: DACTINOMYCIN
     Indication: NEPHROBLASTOMA
     Dosage: 27?WEEK POSTOPERATIVE CHEMOTHERAPY
     Route: 065

REACTIONS (4)
  - Fanconi syndrome [Unknown]
  - Bone marrow failure [Unknown]
  - Disease recurrence [Recovered/Resolved]
  - Product use in unapproved indication [Unknown]
